FAERS Safety Report 8005773-7 (Version None)
Quarter: 2011Q4

REPORT INFORMATION
  Report Type: 
  Country: None (occurrence: None)
  Receive Date: 20111223
  Receipt Date: 20111214
  Transmission Date: 20120403
  Serious: Yes (Hospitalization, Other)
  Sender: FDA-Public Use
  Company Number: US-CELGENEUS-163-21880-11120366

PATIENT
  Sex: Female
  Weight: 85.806 kg

DRUGS (3)
  1. REVLIMID [Suspect]
     Dosage: 5MG-25MG
     Route: 048
     Dates: start: 20110601, end: 20110101
  2. REVLIMID [Suspect]
     Dosage: 25 MILLIGRAM
     Route: 048
     Dates: start: 20111001, end: 20111202
  3. REVLIMID [Suspect]
     Dosage: 25 MILLIGRAM
     Route: 048
     Dates: start: 20101229

REACTIONS (2)
  - NEPHROLITHIASIS [None]
  - RENAL FUNCTION TEST ABNORMAL [None]
